FAERS Safety Report 25156903 (Version 1)
Quarter: 2025Q2

REPORT INFORMATION
  Report Type: Report from Study
  Country: BR (occurrence: BR)
  Receive Date: 20250403
  Receipt Date: 20250403
  Transmission Date: 20250717
  Serious: Yes (Other)
  Sender: TAKEDA
  Company Number: BR-TAKEDA-2025TUS032491

PATIENT
  Age: 18 Year
  Sex: Male

DRUGS (2)
  1. VEDOLIZUMAB [Suspect]
     Active Substance: VEDOLIZUMAB
     Indication: Colitis ulcerative
  2. MESALAMINE [Suspect]
     Active Substance: MESALAMINE
     Indication: Product used for unknown indication
     Dosage: 800 MILLIGRAM, QD

REACTIONS (4)
  - Colitis ulcerative [Unknown]
  - Inappropriate schedule of product administration [Recovered/Resolved]
  - Weight decreased [Not Recovered/Not Resolved]
  - Anaemia [Unknown]

NARRATIVE: CASE EVENT DATE: 20250325
